FAERS Safety Report 9262972 (Version 1)
Quarter: 2013Q2

REPORT INFORMATION
  Report Type: Spontaneous
  Country: US (occurrence: None)
  Receive Date: 20130426
  Receipt Date: 20130426
  Transmission Date: 20140414
  Serious: Yes (Life-Threatening, Hospitalization)
  Sender: FDA-Public Use
  Company Number: None

PATIENT
  Age: 45 Year
  Sex: Female
  Weight: 78.02 kg

DRUGS (1)
  1. PHENTERMINE [Suspect]
     Indication: WEIGHT DECREASED
     Dosage: 1 PER DAY OR HALF PILL TAKEN
     Route: 014
     Dates: start: 20120904, end: 20130220

REACTIONS (2)
  - Cardiac murmur [None]
  - Mitral valve incompetence [None]
